FAERS Safety Report 26103988 (Version 1)
Quarter: 2025Q4

REPORT INFORMATION
  Report Type: Spontaneous
  Country: KR (occurrence: JP)
  Receive Date: 20251129
  Receipt Date: 20251129
  Transmission Date: 20260117
  Serious: Yes (Other)
  Sender: ALEXION PHARMACEUTICALS
  Company Number: JP-ASTRAZENECA-202511GLO019839JP

PATIENT
  Age: 73 Year
  Sex: Female

DRUGS (1)
  1. ECULIZUMAB [Suspect]
     Active Substance: ECULIZUMAB
     Indication: Neuromyelitis optica spectrum disorder
     Dosage: UNK
     Route: 065

REACTIONS (4)
  - Neuromyelitis optica spectrum disorder [Unknown]
  - Cholecystitis acute [Unknown]
  - Pathogen resistance [Unknown]
  - Asthenia [Unknown]
